FAERS Safety Report 5455008-4 (Version None)
Quarter: 2007Q3

REPORT INFORMATION
  Report Type: 
  Country: None (occurrence: None)
  Receive Date: 20070913
  Receipt Date: 20070905
  Transmission Date: 20080115
  Serious: Yes (Hospitalization)
  Sender: FDA-Public Use
  Company Number: 018185

PATIENT
  Age: 66 Year
  Sex: Male

DRUGS (5)
  1. DIAMOX [Suspect]
     Dosage: ORAL, 250 MG, TID, ORAL
     Route: 048
  2. MANNITOL (MANNITOL) INTRAVENOUS [Concomitant]
  3. OFLOXACIN (OFLOXACIN) DROP [Concomitant]
  4. TIMOLOL (TIMOLOL) DROP [Concomitant]
  5. DEXAMETHASONE (DEXAMETHASONE) DROP [Concomitant]

REACTIONS (2)
  - ANGLE CLOSURE GLAUCOMA [None]
  - CHOROIDAL EFFUSION [None]
